FAERS Safety Report 18815859 (Version 1)
Quarter: 2021Q1

REPORT INFORMATION
  Report Type: Spontaneous
  Country: US (occurrence: US)
  Receive Date: 20210130
  Receipt Date: 20210130
  Transmission Date: 20210419
  Serious: No
  Sender: FDA-Public Use
  Company Number: None

PATIENT
  Age: 73 Year
  Sex: Female
  Weight: 85.2 kg

DRUGS (2)
  1. ALIMTA [Suspect]
     Active Substance: PEMETREXED DISODIUM
     Dates: end: 20201228
  2. CISPLATIN. [Suspect]
     Active Substance: CISPLATIN
     Dates: end: 20201228

REACTIONS (2)
  - Fatigue [None]
  - Movement disorder [None]

NARRATIVE: CASE EVENT DATE: 20210104
